FAERS Safety Report 8269872 (Version 4)
Quarter: 2014Q1

REPORT INFORMATION
  Report Type: Spontaneous
  Country: JP (occurrence: None)
  Receive Date: 20111125
  Receipt Date: 20140210
  Transmission Date: 20141002
  Serious: Yes (Hospitalization, Other)
  Sender: FDA-Public Use
  Company Number: ADR-2011-11589

PATIENT
  Age: 4 Year
  Sex: Male

DRUGS (12)
  1. GABALON [Suspect]
     Indication: MUSCLE RELAXANT THERAPY
     Dosage: UNK MCG, DAILY, INTRATH
     Route: 037
  2. DANTRIUM [Concomitant]
  3. PHENOBARBITAL [Concomitant]
  4. MYSTAN [Concomitant]
  5. CERCINE [Concomitant]
  6. ARTANE [Concomitant]
  7. MUCOSIL-10 [Concomitant]
  8. MUCODYNE [Concomitant]
  9. ONON [Concomitant]
  10. TRICLORYL [Concomitant]
  11. ASVERIN (TIPEPIDINE HIBENZATE) [Concomitant]
  12. PERIACTIN [Concomitant]

REACTIONS (2)
  - Implant site extravasation [None]
  - Muscle spasms [None]
